FAERS Safety Report 19399764 (Version 2)
Quarter: 2021Q3

REPORT INFORMATION
  Report Type: Spontaneous
  Country: IT (occurrence: IT)
  Receive Date: 20210610
  Receipt Date: 20210721
  Transmission Date: 20211014
  Serious: Yes (Other)
  Sender: FDA-Public Use
  Company Number: IT-MYLANLABS-2021M1033851

PATIENT
  Sex: Female

DRUGS (6)
  1. MITOTANE [Suspect]
     Active Substance: MITOTANE
     Indication: ADRENOCORTICAL CARCINOMA
     Dosage: 2 GRAM, QD
     Route: 065
  2. MITOTANE [Suspect]
     Active Substance: MITOTANE
     Dosage: 4 G, DAILY
  3. ADRIAMYCIN [Suspect]
     Active Substance: DOXORUBICIN HYDROCHLORIDE
     Indication: ADRENOCORTICAL CARCINOMA
     Dosage: UNK UNK, 6 CYCLES OF EAP
     Route: 065
  4. MITOTANE [Suspect]
     Active Substance: MITOTANE
     Dosage: 4 G, DAILY
  5. CISPLATIN. [Suspect]
     Active Substance: CISPLATIN
     Indication: ADRENOCORTICAL CARCINOMA
     Dosage: UNK, 6 CYCLES OF EAP
     Route: 065
  6. ETOPOSIDE. [Suspect]
     Active Substance: ETOPOSIDE
     Indication: ADRENOCORTICAL CARCINOMA
     Dosage: UNK, 6 CYCLES OF EAP
     Route: 065

REACTIONS (5)
  - Leukopenia [Unknown]
  - Vomiting [Unknown]
  - Anaemia [Unknown]
  - Product use in unapproved indication [Recovered/Resolved]
  - Nausea [Unknown]
